FAERS Safety Report 8438146-3 (Version None)
Quarter: 2012Q2

REPORT INFORMATION
  Report Type: 
  Country: None (occurrence: None)
  Receive Date: 20120614
  Receipt Date: 20120611
  Transmission Date: 20120825
  Serious: Yes (Hospitalization)
  Sender: FDA-Public Use
  Company Number: CA-ROCHE-1077500

PATIENT
  Sex: Female

DRUGS (6)
  1. VEMURAFENIB [Suspect]
     Indication: METASTATIC MALIGNANT MELANOMA
     Route: 048
     Dates: start: 20120430, end: 20120101
  2. METOCLOPRAMIDE [Concomitant]
  3. DOCUSATE [Concomitant]
  4. PAROXETINE [Concomitant]
  5. SENNA-MINT WAF [Concomitant]
  6. LIPITOR [Concomitant]

REACTIONS (1)
  - INTESTINAL PERFORATION [None]
